FAERS Safety Report 4754278-5 (Version None)
Quarter: 2005Q3

REPORT INFORMATION
  Report Type: 
  Country: None (occurrence: None)
  Receive Date: 20050825
  Receipt Date: 20050810
  Transmission Date: 20060218
  Serious: Yes (Life-Threatening)
  Sender: FDA-Public Use
  Company Number: 0205029

PATIENT
  Age: 65 Year
  Sex: Female

DRUGS (1)
  1. DEPODUR [Suspect]
     Indication: PROCEDURAL PAIN
     Dosage: 15 MG (ONCE), EPIDURAL
     Route: 008

REACTIONS (4)
  - ANAESTHETIC COMPLICATION [None]
  - DEPRESSED LEVEL OF CONSCIOUSNESS [None]
  - HYPOXIA [None]
  - INCORRECT ROUTE OF DRUG ADMINISTRATION [None]
